FAERS Safety Report 8882165 (Version 1)
Quarter: 2012Q4

REPORT INFORMATION
  Report Type: 
  Country: US (occurrence: US)
  Receive Date: 20121105
  Receipt Date: 20121105
  Transmission Date: 20130627
  Serious: Yes (Other)
  Sender: FDA-Public Use
  Company Number: US-BRISTOL-MYERS SQUIBB COMPANY-17069162

PATIENT
  Age: 49 Year
  Sex: Female

DRUGS (1)
  1. COUMADIN TABS [Suspect]
     Dosage: Initially 2mg,5mg and 10mg tabs

REACTIONS (2)
  - Thrombosis [Unknown]
  - Drug dose omission [Unknown]
